FAERS Safety Report 20422069 (Version 2)
Quarter: 2022Q1

REPORT INFORMATION
  Report Type: Spontaneous
  Country: JP (occurrence: JP)
  Receive Date: 20220203
  Receipt Date: 20220221
  Transmission Date: 20220424
  Serious: Yes (Other)
  Sender: FDA-Public Use
  Company Number: ALC2021JP006853

PATIENT
  Age: 11 Year
  Sex: Male

DRUGS (2)
  1. PATANOL [Suspect]
     Active Substance: OLOPATADINE HYDROCHLORIDE
     Indication: Conjunctivitis allergic
     Dosage: UNK, BID
     Route: 047
     Dates: start: 20210303
  2. OLOPATADINE [Suspect]
     Active Substance: OLOPATADINE
     Indication: Rhinitis allergic
     Dosage: 5 MG, BID
     Route: 048
     Dates: start: 20210303, end: 20210403

REACTIONS (2)
  - Alopecia areata [Not Recovered/Not Resolved]
  - Concomitant disease aggravated [Not Recovered/Not Resolved]
